FAERS Safety Report 8150375-5 (Version None)
Quarter: 2012Q1

REPORT INFORMATION
  Report Type: 
  Country: None (occurrence: None)
  Receive Date: 20120220
  Receipt Date: 20120217
  Transmission Date: 20120608
  Serious: Yes (Other)
  Sender: FDA-Public Use
  Company Number: US-PFIZER INC-2012043709

PATIENT
  Sex: Female
  Weight: 79.365 kg

DRUGS (6)
  1. CELEBREX [Suspect]
     Indication: ARTHRALGIA
  2. NICOTROL [Suspect]
     Indication: SMOKING CESSATION THERAPY
     Dosage: UNK
  3. ASACOL [Concomitant]
     Indication: COLITIS
     Dosage: 400 MG, 6X/DAY
     Route: 048
  4. ZOLOFT [Suspect]
     Indication: DEPRESSION
     Dosage: 100 MG, 2X/DAY
     Dates: start: 19960101
  5. CELEBREX [Suspect]
     Indication: ARTHRITIS
     Dosage: 200 MG, DAILY
     Route: 048
  6. BUDESONIDE [Concomitant]
     Indication: COLITIS
     Dosage: 3 MG, 3X/DAY

REACTIONS (2)
  - COLITIS [None]
  - COLITIS MICROSCOPIC [None]
